FAERS Safety Report 10312633 (Version 1)
Quarter: 2014Q3

REPORT INFORMATION
  Report Type: Spontaneous
  Country: US (occurrence: None)
  Receive Date: 20140717
  Receipt Date: 20140717
  Transmission Date: 20150326
  Serious: Yes (Other)
  Sender: FDA-Public Use
  Company Number: None

PATIENT
  Age: 54 Year
  Sex: Female

DRUGS (1)
  1. COPAXONE [Suspect]
     Active Substance: GLATIRAMER ACETATE
     Indication: MULTIPLE SCLEROSIS
     Dosage: 40MG/ML 1ML, 3 TIMES X WEEK, INJECTION
     Dates: start: 20140619

REACTIONS (3)
  - Pruritus [None]
  - Swelling face [None]
  - Contusion [None]

NARRATIVE: CASE EVENT DATE: 20140716
